FAERS Safety Report 26155632 (Version 1)
Quarter: 2025Q4

REPORT INFORMATION
  Report Type: Spontaneous
  Country: EU (occurrence: EU)
  Receive Date: 20251215
  Receipt Date: 20251215
  Transmission Date: 20260117
  Serious: No
  Sender: ALKEM
  Company Number: EU-ALKEM LABORATORIES LIMITED-DE-ALKEM-2025-11471

PATIENT
  Age: 70 Year
  Sex: Female

DRUGS (10)
  1. TACROLIMUS [Suspect]
     Active Substance: TACROLIMUS
     Indication: Erythema annulare
     Dosage: UNK (CREAM)
     Route: 061
  2. BORTEZOMIB [Suspect]
     Active Substance: BORTEZOMIB
     Indication: Erythema annulare
     Dosage: 1.3 MILLIGRAM/SQ. METER (BODY SURFACE AREA ON DAYS 1, 4, 8, AND 11 OF EACH CYCLE, FOLLOWED BY 10 DAY
     Route: 065
  3. BORTEZOMIB [Suspect]
     Active Substance: BORTEZOMIB
     Indication: Plasma cell myeloma
  4. CALCIPOTRIENE [Suspect]
     Active Substance: CALCIPOTRIENE
     Indication: Erythema annulare
     Dosage: UNK
     Route: 061
  5. DIMETHINDENE [Suspect]
     Active Substance: DIMETHINDENE
     Indication: Erythema annulare
     Dosage: UNK
     Route: 042
  6. DIMETHINDENE [Suspect]
     Active Substance: DIMETHINDENE
     Dosage: UNK (TAPERING DOSE)
     Route: 042
  7. DIMETHINDENE [Suspect]
     Active Substance: DIMETHINDENE
     Dosage: UNK
     Route: 048
  8. PREDNISOLONE SODIUM SUCCINATE [Suspect]
     Active Substance: PREDNISOLONE SODIUM SUCCINATE
     Indication: Erythema annulare
     Dosage: UNK
     Route: 042
  9. PREDNISOLONE SODIUM SUCCINATE [Suspect]
     Active Substance: PREDNISOLONE SODIUM SUCCINATE
     Dosage: UNK (TAPERING DOSE)
     Route: 042
  10. PREDNISOLONE SODIUM SUCCINATE [Suspect]
     Active Substance: PREDNISOLONE SODIUM SUCCINATE
     Dosage: UNK
     Route: 048

REACTIONS (2)
  - Therapy non-responder [Unknown]
  - Off label use [Unknown]
